FAERS Safety Report 7564674-9 (Version None)
Quarter: 2011Q2

REPORT INFORMATION
  Report Type: 
  Country: None (occurrence: None)
  Receive Date: 20110622
  Receipt Date: 20101012
  Transmission Date: 20111010
  Serious: Yes (Other)
  Sender: FDA-Public Use
  Company Number: US-MYLANLABS-2010S1015128

PATIENT
  Age: 21 Year
  Sex: Male
  Weight: 71.67 kg

DRUGS (3)
  1. CLOZAPINE [Suspect]
     Route: 048
     Dates: start: 20100816, end: 20100908
  2. BENADRYL [Concomitant]
  3. CLOZAPINE [Suspect]
     Indication: SCHIZOAFFECTIVE DISORDER
     Route: 048
     Dates: start: 20100816, end: 20100908

REACTIONS (3)
  - GRANULOCYTOPENIA [None]
  - ASPARTATE AMINOTRANSFERASE INCREASED [None]
  - ALANINE AMINOTRANSFERASE INCREASED [None]
